FAERS Safety Report 5491884-7 (Version None)
Quarter: 2007Q4

REPORT INFORMATION
  Report Type: 
  Country: None (occurrence: None)
  Receive Date: 20071018
  Receipt Date: 20071001
  Transmission Date: 20080405
  Serious: Yes (Death)
  Sender: FDA-Public Use
  Company Number: 2007S1009306

PATIENT
  Age: 5 Year
  Sex: Male

DRUGS (3)
  1. AMNESTEEM [Suspect]
     Indication: NEUROBLASTOMA
     Dosage: 40 MG; TWICE A DAY; ORAL
     Route: 048
     Dates: end: 20061001
  2. AMNESTEEM [Suspect]
     Indication: NEUROBLASTOMA
     Dosage: 40 MG; TWICE A DAY; ORAL
     Route: 048
     Dates: end: 20061001
  3. AMNESTEEM [Suspect]
     Indication: NEUROBLASTOMA
     Dosage: 40 MG; TWICE A DAY; ORAL
     Route: 048

REACTIONS (2)
  - MALIGNANT NEOPLASM PROGRESSION [None]
  - NEUROBLASTOMA [None]
